FAERS Safety Report 20536052 (Version 1)
Quarter: 2022Q1

REPORT INFORMATION
  Report Type: Spontaneous
  Country: MT (occurrence: MT)
  Receive Date: 20220302
  Receipt Date: 20220302
  Transmission Date: 20220423
  Serious: Yes (Hospitalization)
  Sender: FDA-Public Use
  Company Number: None

PATIENT
  Age: 59 Year
  Sex: Female

DRUGS (5)
  1. XARELTO [Suspect]
     Active Substance: RIVAROXABAN
     Indication: Deep vein thrombosis
     Dosage: 15 MG, BID
     Route: 048
     Dates: start: 20210919, end: 20210919
  2. DIOSMIN [Concomitant]
     Active Substance: DIOSMIN
     Indication: Peripheral venous disease
     Dosage: 2 DF, TID
     Route: 048
     Dates: start: 20180101
  3. PAROXETINE [Concomitant]
     Active Substance: PAROXETINE
     Dosage: 20MG DAILY
     Route: 048
     Dates: start: 20180101
  4. ZOLPIDEM [Concomitant]
     Active Substance: ZOLPIDEM TARTRATE
     Dosage: 0.5 DF, QD
     Route: 048
     Dates: start: 20180101
  5. VALSARTAN [Concomitant]
     Active Substance: VALSARTAN
     Dosage: 160 MG, BID
     Route: 048
     Dates: start: 20180101

REACTIONS (4)
  - Pruritus [Recovered/Resolved]
  - Chest discomfort [Recovered/Resolved]
  - Dyspnoea [Recovered/Resolved]
  - Urticaria [Recovered/Resolved]

NARRATIVE: CASE EVENT DATE: 20210919
